FAERS Safety Report 9831982 (Version 3)
Quarter: 2014Q2

REPORT INFORMATION
  Report Type: Spontaneous
  Country: IT (occurrence: IT)
  Receive Date: 20140121
  Receipt Date: 20140402
  Transmission Date: 20141212
  Serious: Yes (Hospitalization)
  Sender: FDA-Public Use
  Company Number: PHHY2014IT006351

PATIENT
  Age: 10 Year
  Sex: Male

DRUGS (1)
  1. TOLEP [Suspect]
     Dosage: 2 DF TOTAL
     Route: 048
     Dates: start: 20140105, end: 20140105

REACTIONS (3)
  - Somnolence [Recovered/Resolved]
  - Hypokalaemia [Recovered/Resolved]
  - Incorrect dosage administered [Recovered/Resolved]
